FAERS Safety Report 7705514-4 (Version None)
Quarter: 2011Q3

REPORT INFORMATION
  Report Type: 
  Country: None (occurrence: None)
  Receive Date: 20110809
  Receipt Date: 20110809
  Transmission Date: 20111222
  Serious: Yes (Life-Threatening, Hospitalization, Disabling, Other)
  Sender: FDA-Public Use
  Company Number: AUR-APL-2010-03071

PATIENT
  Age: 69 Year
  Sex: Female

DRUGS (15)
  1. SIMVASTATIN [Suspect]
     Indication: PRODUCT USED FOR UNKNOWN INDICATION
     Dosage: 40 MG (40 MG, 1 IN 1 D), ORAL
     Route: 048
     Dates: start: 20061201, end: 20101022
  2. CODEINE PHOSPHATE (CODEINE PHOSPHATE) [Concomitant]
  3. BALSALAZIDE (BALSALAZIDE) [Concomitant]
  4. CITALOPRAM HYDROBROMIDE [Concomitant]
  5. FURUSEMIDE (FUROSEMIDE) [Concomitant]
  6. TRIMETHROPRIM (TIMETHROPRIM) [Concomitant]
  7. AMIODARONE HCL [Suspect]
     Indication: PRODUCT USED FOR UNKNOWN INDICATION
     Dosage: 200 MG (200 MG, 1 IN 1 D), ORAL
     Route: 048
     Dates: start: 20091001, end: 20101022
  8. FLOXACILLIN SODIUM [Concomitant]
  9. SPIRONOLACTONE (SPIRAONOLACTONE) [Concomitant]
  10. BUMETANIDE [Concomitant]
  11. WARFARIN SODIUM [Concomitant]
  12. ASPIRIN [Concomitant]
  13. NEBIVOLOL HCL [Concomitant]
  14. ACETAMINOPHEN [Concomitant]
  15. PERIDOPRIL (PERINOPRIL) [Concomitant]

REACTIONS (5)
  - RENAL IMPAIRMENT [None]
  - BLOOD CREATININE INCREASED [None]
  - INTERNATIONAL NORMALISED RATIO INCREASED [None]
  - RHABDOMYOLYSIS [None]
  - MOBILITY DECREASED [None]
